FAERS Safety Report 5108406-2 (Version None)
Quarter: 2006Q3

REPORT INFORMATION
  Report Type: 
  Country: None (occurrence: None)
  Receive Date: 20060915
  Receipt Date: 20060901
  Transmission Date: 20061208
  Serious: Yes (Life-Threatening, Hospitalization)
  Sender: FDA-Public Use
  Company Number: 2006S1000901

PATIENT
  Age: 60 Year
  Sex: Female
  Weight: 68.0396 kg

DRUGS (1)
  1. CLOZAPINE [Suspect]
     Dosage: 100 MG; TID; ORAL
     Route: 048
     Dates: start: 20051203, end: 20060103

REACTIONS (4)
  - AGRANULOCYTOSIS [None]
  - DRUG DISPENSING ERROR [None]
  - MALAISE [None]
  - WRONG DRUG ADMINISTERED [None]
